FAERS Safety Report 13064924 (Version 1)
Quarter: 2016Q4

REPORT INFORMATION
  Report Type: Spontaneous
  Country: US (occurrence: US)
  Receive Date: 20161223
  Receipt Date: 20161223
  Transmission Date: 20170207
  Serious: No
  Sender: FDA-Public Use
  Company Number: None

PATIENT
  Age: 49 Year
  Sex: Female

DRUGS (1)
  1. IBRANCE [Suspect]
     Active Substance: PALBOCICLIB
     Indication: BREAST CANCER FEMALE

REACTIONS (6)
  - Pain in extremity [None]
  - Fatigue [None]
  - White blood cell count decreased [None]
  - Pyrexia [None]
  - Lip pain [None]
  - Rash [None]

NARRATIVE: CASE EVENT DATE: 20161215
